FAERS Safety Report 6186482-6 (Version None)
Quarter: 2009Q2

REPORT INFORMATION
  Report Type: 
  Country: None (occurrence: None)
  Receive Date: 20090507
  Receipt Date: 20090507
  Transmission Date: 20091009
  Serious: Yes (Hospitalization)
  Sender: FDA-Public Use
  Company Number: None

PATIENT
  Age: 52 Year
  Sex: Female
  Weight: 58.514 kg

DRUGS (2)
  1. DOXIL [Suspect]
  2. DOXORUBICIN HCL [Concomitant]

REACTIONS (3)
  - HERPES VIRUS INFECTION [None]
  - HERPES ZOSTER [None]
  - RASH [None]
